FAERS Safety Report 4629514-6 (Version None)
Quarter: 2005Q2

REPORT INFORMATION
  Report Type: 
  Country: None (occurrence: None)
  Receive Date: 20050405
  Receipt Date: 20050324
  Transmission Date: 20051028
  Serious: Yes (Hospitalization)
  Sender: FDA-Public Use
  Company Number: 2005049701

PATIENT
  Age: 66 Year
  Sex: Male
  Weight: 72.5755 kg

DRUGS (7)
  1. IRINOTECAN HCL [Suspect]
     Indication: COLORECTAL CANCER
     Dosage: 185 MG (185 MG, QWK INTERVAL:  WEEKLY), INTRAVENOUS
     Route: 042
     Dates: start: 20030301
  2. DEXAMETHASONE [Concomitant]
  3. ATROPINE [Concomitant]
  4. LORAZEPAM [Concomitant]
  5. DOLASETRON MESILATE (DOLASETRON MESILATE) [Concomitant]
  6. FLUOROURACIL [Concomitant]
  7. LEUCOVORIN CALCIUM [Concomitant]

REACTIONS (2)
  - CARDIAC FAILURE CONGESTIVE [None]
  - EJECTION FRACTION DECREASED [None]
